FAERS Safety Report 17534949 (Version 4)
Quarter: 2020Q2

REPORT INFORMATION
  Report Type: Spontaneous
  Country: US (occurrence: US)
  Receive Date: 20200313
  Receipt Date: 20200513
  Transmission Date: 20200713
  Serious: No
  Sender: FDA-Public Use
  Company Number: US-TAKEDA-2020TUS013797

PATIENT
  Sex: Female
  Weight: 186 kg

DRUGS (1)
  1. NINLARO [Suspect]
     Active Substance: IXAZOMIB CITRATE
     Indication: PLASMA CELL MYELOMA
     Dosage: 4 MILLIGRAM
     Route: 048
     Dates: start: 202002, end: 202005

REACTIONS (8)
  - Malaise [Unknown]
  - Asthenia [Unknown]
  - Syncope [Unknown]
  - Diarrhoea [Unknown]
  - Skin burning sensation [Unknown]
  - Vomiting [Unknown]
  - Gastric disorder [Unknown]
  - Skin exfoliation [Unknown]
